FAERS Safety Report 15562285 (Version 1)
Quarter: 2018Q4

REPORT INFORMATION
  Report Type: Spontaneous
  Country: FR (occurrence: FR)
  Receive Date: 20181029
  Receipt Date: 20181029
  Transmission Date: 20190205
  Serious: Yes (Hospitalization)
  Sender: FDA-Public Use
  Company Number: FR-PFIZER INC-2018434573

PATIENT
  Age: 47 Year
  Sex: Female
  Weight: 66 kg

DRUGS (1)
  1. LYRICA [Suspect]
     Active Substance: PREGABALIN
     Dosage: UNK
     Route: 048
     Dates: start: 20180924, end: 20180925

REACTIONS (2)
  - Hypertransaminasaemia [Recovering/Resolving]
  - Hepatocellular injury [Recovering/Resolving]

NARRATIVE: CASE EVENT DATE: 20180925
